FAERS Safety Report 8126967-6 (Version None)
Quarter: 2011Q4

REPORT INFORMATION
  Report Type: 
  Country: None (occurrence: None)
  Receive Date: 20111227
  Receipt Date: 20110927
  Transmission Date: 20120403
  Serious: No
  Sender: FDA-Public Use
  Company Number: PHEH2011US03846

PATIENT
  Age: 35 Year
  Sex: Female

DRUGS (3)
  1. VITAMIN TAB [Concomitant]
  2. CALCIUM W/VITAMIN D NOS (CALCIUM, VIT D NOS) [Concomitant]
  3. GILENYA [Suspect]
     Indication: RELAPSING-REMITTING MULTIPLE SCLEROSIS
     Dosage: 0.5 MG, QD, ORAL
     Route: 048
     Dates: start: 20110901

REACTIONS (2)
  - ABDOMINAL DISTENSION [None]
  - ABDOMINAL DISCOMFORT [None]
